FAERS Safety Report 24204858 (Version 1)
Quarter: 2024Q3

REPORT INFORMATION
  Report Type: Spontaneous
  Country: FR (occurrence: FR)
  Receive Date: 20240813
  Receipt Date: 20240813
  Transmission Date: 20241017
  Serious: Yes (Hospitalization)
  Sender: MYLAN
  Company Number: None

PATIENT
  Age: 69 Year
  Sex: Male
  Weight: 50 kg

DRUGS (6)
  1. VENLAFAXINE [Suspect]
     Active Substance: VENLAFAXINE HYDROCHLORIDE
     Indication: Depression
     Dosage: 1 DOSAGE FORM, QD
     Route: 048
  2. LENALIDOMIDE [Suspect]
     Active Substance: LENALIDOMIDE
     Indication: Plasma cell myeloma
     Dosage: 1 DOSAGE FORM, CYCLE (1/DAY, 3 WEEKS OUT OF 4)
     Route: 048
     Dates: start: 202205, end: 202403
  3. LANSOPRAZOLE [Suspect]
     Active Substance: LANSOPRAZOLE
     Indication: Prophylaxis
     Dosage: 1 DOSAGE FORM, QD
     Route: 048
  4. VALACYCLOVIR HYDROCHLORIDE [Suspect]
     Active Substance: VALACYCLOVIR HYDROCHLORIDE
     Indication: Antiviral prophylaxis
     Dosage: 1 GRAM, QD
     Route: 048
     Dates: start: 202205
  5. DEXAMETHASONE [Suspect]
     Active Substance: DEXAMETHASONE
     Indication: Plasma cell myeloma
     Dosage: 1 DOSAGE FORM, QW
     Route: 048
     Dates: start: 202205, end: 202403
  6. DARATUMUMAB [Suspect]
     Active Substance: DARATUMUMAB
     Indication: Plasma cell myeloma
     Dosage: 1 DOSAGE FORM, Q28D
     Route: 058
     Dates: start: 202205, end: 202403

REACTIONS (1)
  - Atypical haemolytic uraemic syndrome [Recovered/Resolved]

NARRATIVE: CASE EVENT DATE: 20240310
